FAERS Safety Report 9627004 (Version 1)
Quarter: 2013Q4

REPORT INFORMATION
  Report Type: Spontaneous
  Country: US (occurrence: US)
  Receive Date: 20131016
  Receipt Date: 20131016
  Transmission Date: 20140711
  Serious: No
  Sender: FDA-Public Use
  Company Number: US-PURDUE-USA-2013-0100038

PATIENT
  Age: 85 Year
  Sex: Male

DRUGS (1)
  1. OXYCODONE HCL IMMEDIATE RELEASE (91-490) [Suspect]
     Indication: PRODUCT USED FOR UNKNOWN INDICATION
     Route: 048

REACTIONS (2)
  - Urticaria [Unknown]
  - Rash [Unknown]
